FAERS Safety Report 10314599 (Version 1)
Quarter: 2014Q3

REPORT INFORMATION
  Report Type: Report from Study
  Country: US (occurrence: US)
  Receive Date: 20140718
  Receipt Date: 20140718
  Transmission Date: 20150326
  Serious: Yes (Hospitalization, Other)
  Sender: FDA-Public Use
  Company Number: US-ABBVIE-14P-163-1258169-00

PATIENT
  Age: 54 Year
  Sex: Male

DRUGS (1)
  1. HUMIRA [Suspect]
     Active Substance: ADALIMUMAB
     Indication: CROHN^S DISEASE

REACTIONS (11)
  - Gastrointestinal stoma complication [Recovered/Resolved]
  - Injection site pain [Not Recovered/Not Resolved]
  - Gastrointestinal stoma complication [Recovered/Resolved]
  - Incorrect dose administered [Unknown]
  - Colectomy [Unknown]
  - Device issue [Unknown]
  - Inappropriate schedule of drug administration [Unknown]
  - Gastrointestinal stoma complication [Recovered/Resolved]
  - Sleep disorder [Unknown]
  - Device issue [Unknown]
  - Drug dose omission [Unknown]

NARRATIVE: CASE EVENT DATE: 2012
